FAERS Safety Report 13568429 (Version 1)
Quarter: 2017Q2

REPORT INFORMATION
  Report Type: Spontaneous
  Country: US (occurrence: US)
  Receive Date: 20170522
  Receipt Date: 20170522
  Transmission Date: 20170830
  Serious: Yes (Other)
  Sender: FDA-Public Use
  Company Number: US-PFIZER INC-2017213598

PATIENT
  Sex: Female

DRUGS (1)
  1. XELJANZ [Suspect]
     Active Substance: TOFACITINIB CITRATE
     Dosage: 5 MG, UNK

REACTIONS (13)
  - Rheumatoid arthritis [Unknown]
  - Paraesthesia [Unknown]
  - Back pain [Unknown]
  - Hypoaesthesia [Unknown]
  - Joint range of motion decreased [Unknown]
  - Muscle spasms [Unknown]
  - Fatigue [Unknown]
  - Condition aggravated [Unknown]
  - Balance disorder [Unknown]
  - Diarrhoea [Unknown]
  - Weight increased [Unknown]
  - Insomnia [Unknown]
  - Musculoskeletal stiffness [Unknown]
